FAERS Safety Report 9912682 (Version 5)
Quarter: 2014Q2

REPORT INFORMATION
  Report Type: Spontaneous
  Country: SG (occurrence: None)
  Receive Date: 20140212
  Receipt Date: 20140613
  Transmission Date: 20141212
  Serious: Yes (Hospitalization)
  Sender: FDA-Public Use
  Company Number: 2014SG003003

PATIENT
  Age: 67 Year
  Sex: Female

DRUGS (1)
  1. PONATINIB [Suspect]
     Indication: CHRONIC MYELOID LEUKAEMIA
     Dosage: QAM
     Route: 048
     Dates: start: 20130107, end: 20140106

REACTIONS (5)
  - Reversible ischaemic neurological deficit [None]
  - Cerebrovascular accident [None]
  - Carotid artery stenosis [None]
  - Cerebral artery stenosis [None]
  - Lacunar infarction [None]
